FAERS Safety Report 16564128 (Version 1)
Quarter: 2019Q3

REPORT INFORMATION
  Report Type: Spontaneous
  Country: US (occurrence: US)
  Receive Date: 20190712
  Receipt Date: 20190712
  Transmission Date: 20191004
  Serious: No
  Sender: FDA-Public Use
  Company Number: US-AMGEN-USASP2019110756

PATIENT
  Age: 53 Year
  Sex: Female

DRUGS (19)
  1. SUMATRIPTAN. [Concomitant]
     Active Substance: SUMATRIPTAN
     Dosage: 100 MILLIGRAM
  2. PREDNISONE. [Concomitant]
     Active Substance: PREDNISONE
     Dosage: 20 MILLIGRAM
  3. VERAPAMIL HCL [Concomitant]
     Active Substance: VERAPAMIL HYDROCHLORIDE
     Dosage: 120 MILLIGRAM
  4. ESTRACE [Concomitant]
     Active Substance: ESTRADIOL
     Dosage: 2 MILLIGRAM
  5. TYLENOL [Concomitant]
     Active Substance: ACETAMINOPHEN
     Dosage: (300-30) MILLIGRAM
  6. ALBUTEROL SULFATE. [Concomitant]
     Active Substance: ALBUTEROL SULFATE
     Dosage: 2.5 MILLIGRAM
  7. FLONASE [Concomitant]
     Active Substance: FLUTICASONE PROPIONATE
     Dosage: 50 MICROGRAM/AC
  8. FLAX OIL [LINUM USITATISSIMUM OIL] [Concomitant]
     Dosage: UNK
  9. ENBREL [Suspect]
     Active Substance: ETANERCEPT
     Indication: RHEUMATOID ARTHRITIS
     Dosage: UNK
     Route: 065
  10. LYRICA [Concomitant]
     Active Substance: PREGABALIN
     Dosage: 300 MILLIGRAM
  11. MAGNESIUM [Concomitant]
     Active Substance: MAGNESIUM
     Dosage: 500 MILLIGRAM
  12. MONTELUKAST [Concomitant]
     Active Substance: MONTELUKAST SODIUM
     Dosage: 10 MILLIGRAM
  13. OXYBUTYNIN. [Concomitant]
     Active Substance: OXYBUTYNIN CHLORIDE
     Dosage: 5 MILLIGRAM
  14. WELLBUTRIN [Concomitant]
     Active Substance: BUPROPION HYDROCHLORIDE
     Dosage: 200 MILLIGRAM
  15. CELEBREX [Concomitant]
     Active Substance: CELECOXIB
     Dosage: 100 MILLIGRAM
  16. CEPHALEXINE [Concomitant]
     Active Substance: CEPHALEXIN
     Dosage: 500 MILLIGRAM
  17. PRILOSAN [Concomitant]
     Dosage: 20 MILLIGRAM
  18. ROPINIROLE. [Concomitant]
     Active Substance: ROPINIROLE
     Dosage: 1 MILLIGRAM
  19. VITAMIN D [ERGOCALCIFEROL] [Concomitant]
     Active Substance: ERGOCALCIFEROL
     Dosage: 1000 UNIT

REACTIONS (1)
  - Therapeutic product effect decreased [Unknown]
